FAERS Safety Report 5400205-7 (Version None)
Quarter: 2007Q3

REPORT INFORMATION
  Report Type: 
  Country: None (occurrence: None)
  Receive Date: 20070727
  Receipt Date: 20070727
  Transmission Date: 20080115
  Serious: No
  Sender: FDA-Public Use
  Company Number: None

PATIENT
  Age: 31 Year
  Sex: Male

DRUGS (1)
  1. HALOPERIDOL [Suspect]
     Dosage: 2MG PRN PO
     Route: 048
     Dates: start: 20070702, end: 20070704

REACTIONS (1)
  - DYSTONIA [None]
